FAERS Safety Report 6981436-1 (Version None)
Quarter: 2010Q3

REPORT INFORMATION
  Report Type: 
  Country: None (occurrence: None)
  Receive Date: 20100914
  Receipt Date: 20100831
  Transmission Date: 20110219
  Serious: Yes (Death)
  Sender: FDA-Public Use
  Company Number: DE-MYLANLABS-2010S1015909

PATIENT
  Age: 67 Year
  Weight: 92 kg

DRUGS (5)
  1. ALLOPURINOL [Suspect]
     Indication: GOUT
     Route: 065
  2. METOPROLOL TARTRATE [Concomitant]
     Dosage: METOPROLOL TARTRATE 50MG 1-0-1
     Route: 065
  3. SIMVASTATIN [Concomitant]
     Dosage: SIMVASTATIN 40MG 0-0-0-1
     Route: 065
  4. ENALAPRIL [Concomitant]
     Dosage: ENALAPRIL 2.5MG 1-0-1
     Route: 065
  5. ASPIRIN [Concomitant]
     Dosage: ACETYLSALICYLIC ACID 100MG 1-0-0
     Route: 065

REACTIONS (4)
  - DRUG RASH WITH EOSINOPHILIA AND SYSTEMIC SYMPTOMS [None]
  - MULTI-ORGAN FAILURE [None]
  - SEPSIS [None]
  - TOXIC EPIDERMAL NECROLYSIS [None]
